FAERS Safety Report 6329097-9 (Version None)
Quarter: 2009Q3

REPORT INFORMATION
  Report Type: 
  Country: None (occurrence: None)
  Receive Date: 20090826
  Receipt Date: 20090817
  Transmission Date: 20100115
  Serious: Yes (Hospitalization)
  Sender: FDA-Public Use
  Company Number: US-BAYER-200616326BWH

PATIENT
  Age: 30 Year
  Sex: Female

DRUGS (2)
  1. AVELOX [Suspect]
     Indication: UPPER RESPIRATORY TRACT INFECTION
     Dosage: TOTAL DAILY DOSE: 400 MG  UNIT DOSE: 400 MG
     Route: 048
     Dates: start: 20060101
  2. MOTRIN [Suspect]
     Indication: HEADACHE
     Dosage: TOTAL DAILY DOSE: 1200 MG
     Dates: start: 20060101

REACTIONS (1)
  - GRAND MAL CONVULSION [None]
